FAERS Safety Report 9321986 (Version 1)
Quarter: 2013Q2

REPORT INFORMATION
  Report Type: Spontaneous
  Country: GR (occurrence: GR)
  Receive Date: 20130531
  Receipt Date: 20130531
  Transmission Date: 20140414
  Serious: Yes (Hospitalization, Other)
  Sender: FDA-Public Use
  Company Number: GR-SANOFI-AVENTIS-2013SA052598

PATIENT
  Sex: Female

DRUGS (4)
  1. STILNOX [Suspect]
     Indication: PRODUCT USED FOR UNKNOWN INDICATION
     Dosage: DOSE REDUCED
     Route: 065
  2. STILNOX [Suspect]
     Indication: PRODUCT USED FOR UNKNOWN INDICATION
     Dosage: DOSE REDUCED
     Route: 065
  3. LONARID [Concomitant]
  4. XANAX [Concomitant]

REACTIONS (6)
  - Cerebral atrophy [Unknown]
  - Drug dependence [Unknown]
  - Schizophreniform disorder [Unknown]
  - Withdrawal syndrome [Unknown]
  - Memory impairment [Unknown]
  - Headache [Unknown]
